FAERS Safety Report 25572495 (Version 2)
Quarter: 2025Q4

REPORT INFORMATION
  Report Type: Spontaneous
  Country: US (occurrence: US)
  Receive Date: 20250717
  Receipt Date: 20251015
  Transmission Date: 20260118
  Serious: No
  Sender: BRISTOL-MYERS SQUIBB COMPANY
  Company Number: US-BRISTOL-MYERS SQUIBB COMPANY-2025-100638

PATIENT
  Age: 17 Year
  Sex: Female
  Weight: 53.3 kg

DRUGS (3)
  1. OPDIVO [Suspect]
     Active Substance: NIVOLUMAB
     Indication: Sarcoma metastatic
  2. YERVOY [Suspect]
     Active Substance: IPILIMUMAB
     Indication: Sarcoma metastatic
  3. CABOZANTINIB [Concomitant]
     Active Substance: CABOZANTINIB
     Indication: Product used for unknown indication
     Dosage: NO DOSING INFORMATION WAS PROVIDED FOR THE CABOZANTINIB

REACTIONS (3)
  - Product storage error [Unknown]
  - Blood creatinine increased [Unknown]
  - Off label use [Unknown]

NARRATIVE: CASE EVENT DATE: 20250715
